FAERS Safety Report 25574866 (Version 1)
Quarter: 2025Q3

REPORT INFORMATION
  Report Type: Spontaneous
  Country: CN (occurrence: CN)
  Receive Date: 20250718
  Receipt Date: 20250718
  Transmission Date: 20251021
  Serious: Yes (Other)
  Sender: BAXTER
  Company Number: None

PATIENT
  Age: 56 Year
  Sex: Male
  Weight: 45 kg

DRUGS (6)
  1. CYCLOPHOSPHAMIDE [Suspect]
     Active Substance: CYCLOPHOSPHAMIDE
     Indication: Invasive ductal breast carcinoma
     Dosage: 0.8 G, QD, 40 DROPS/MIN
     Route: 041
     Dates: start: 20250619, end: 20250619
  2. CYCLOPHOSPHAMIDE [Suspect]
     Active Substance: CYCLOPHOSPHAMIDE
     Indication: HER2 positive breast cancer
  3. SODIUM CHLORIDE [Suspect]
     Active Substance: SODIUM CHLORIDE
     Dosage: 0.9% NS 500 ML, QD, 40 DROPS/MIN (CYCLOPHOSPHAMIDE)
     Route: 041
     Dates: start: 20250619, end: 20250619
  4. SODIUM CHLORIDE [Suspect]
     Active Substance: SODIUM CHLORIDE
     Dosage: 0.9% NS 70 ML, QD AT 40 DROPS/MIN (PACLITAXEL FOR INJECTION (ALBUMIN BOUND))
     Route: 041
     Dates: start: 20250619, end: 20250619
  5. PACLITAXEL [Suspect]
     Active Substance: PACLITAXEL
     Indication: Invasive ductal breast carcinoma
     Dosage: 350 MG, QD, 40 DROPS/MIN
     Route: 041
     Dates: start: 20250619, end: 20250619
  6. PACLITAXEL [Suspect]
     Active Substance: PACLITAXEL
     Indication: HER2 positive breast cancer

REACTIONS (2)
  - Myelosuppression [Recovering/Resolving]
  - Neutropenia [Recovered/Resolved]

NARRATIVE: CASE EVENT DATE: 20250630
